FAERS Safety Report 5061886-3 (Version None)
Quarter: 2006Q3

REPORT INFORMATION
  Report Type: 
  Country: None (occurrence: None)
  Receive Date: 20060726
  Receipt Date: 20060719
  Transmission Date: 20061208
  Serious: Yes (Death, Hospitalization, Other)
  Sender: FDA-Public Use
  Company Number: PHBS2006ZA10831

PATIENT
  Age: 56 Year
  Sex: Male

DRUGS (2)
  1. CLOZAPINE [Suspect]
     Indication: SCHIZOPHRENIA
     Dosage: 300-400 MG/D
     Route: 065
     Dates: start: 19890101
  2. ENALAPRIL MALEATE [Concomitant]
     Indication: HYPERTENSION
     Dosage: 5 MG/D
     Route: 065

REACTIONS (9)
  - CONSTIPATION [None]
  - CONVULSION [None]
  - DELUSION [None]
  - DIARRHOEA [None]
  - HICCUPS [None]
  - INTESTINAL OBSTRUCTION [None]
  - MALIGNANT NEOPLASM PROGRESSION [None]
  - MORBID THOUGHTS [None]
  - WEIGHT DECREASED [None]
